FAERS Safety Report 13754025 (Version 4)
Quarter: 2017Q3

REPORT INFORMATION
  Report Type: Spontaneous
  Country: JP (occurrence: JP)
  Receive Date: 20170714
  Receipt Date: 20170916
  Transmission Date: 20171127
  Serious: Yes (Other)
  Sender: FDA-Public Use
  Company Number: JP-AMGEN-JPNSP2017104317

PATIENT
  Sex: Male

DRUGS (5)
  1. EPADEL [Concomitant]
     Active Substance: ICOSAPENT
     Dosage: 1800 MG, UNK
  2. CHOLEBINE [Concomitant]
     Active Substance: COLESTILAN CHLORIDE
     Dosage: 3.62 MG, UNK
  3. REPATHA [Suspect]
     Active Substance: EVOLOCUMAB
     Indication: TYPE IIA HYPERLIPIDAEMIA
     Dosage: 140 MG, UNK
     Route: 058
     Dates: start: 20160608
  4. CANAGLU [Concomitant]
     Active Substance: CANAGLIFLOZIN
     Dosage: 100 MG, UNK
  5. CRESTOR [Concomitant]
     Active Substance: ROSUVASTATIN CALCIUM
     Dosage: 5 MG, UNK

REACTIONS (1)
  - Intervertebral disc protrusion [Unknown]
